FAERS Safety Report 8403399-4 (Version None)
Quarter: 2012Q2

REPORT INFORMATION
  Report Type: 
  Country: None (occurrence: None)
  Receive Date: 20120601
  Receipt Date: 20120523
  Transmission Date: 20120825
  Serious: Yes (Other)
  Sender: FDA-Public Use
  Company Number: KR-JNJFOC-20120308763

PATIENT
  Age: 70 Year
  Sex: Male

DRUGS (2)
  1. ACETAMINOPHEN [Suspect]
     Indication: TOOTHACHE
     Dosage: 10 CAPLETS TOTAL FOR ONE WEEK
     Route: 048
     Dates: start: 20120301, end: 20120301
  2. ACETAMINOPHEN [Suspect]
     Route: 048

REACTIONS (2)
  - HAEMATOCHEZIA [None]
  - GASTRIC HAEMORRHAGE [None]
